FAERS Safety Report 16561431 (Version 1)
Quarter: 2019Q3

REPORT INFORMATION
  Report Type: Spontaneous
  Country: GB (occurrence: GB)
  Receive Date: 20190711
  Receipt Date: 20190711
  Transmission Date: 20191004
  Serious: Yes (Other)
  Sender: FDA-Public Use
  Company Number: PHHY2019GB156188

PATIENT
  Age: 38 Year
  Sex: Male

DRUGS (1)
  1. OMEPRAZOLE. [Suspect]
     Active Substance: OMEPRAZOLE
     Indication: PRODUCT USED FOR UNKNOWN INDICATION
     Dosage: UNK
     Route: 065

REACTIONS (7)
  - Vomiting [Unknown]
  - Diarrhoea [Unknown]
  - Autoimmune hepatitis [Unknown]
  - Abdominal pain upper [Unknown]
  - Nausea [Unknown]
  - Portal tract inflammation [Unknown]
  - Drug-induced liver injury [Unknown]
